FAERS Safety Report 6896686-2 (Version None)
Quarter: 2010Q3

REPORT INFORMATION
  Report Type: 
  Country: None (occurrence: None)
  Receive Date: 20100802
  Receipt Date: 20070123
  Transmission Date: 20110219
  Serious: No
  Sender: FDA-Public Use
  Company Number: US-PFIZER INC-2007006942

PATIENT
  Sex: Female
  Weight: 65.77 kg

DRUGS (3)
  1. LYRICA [Suspect]
     Indication: SURGERY
     Dates: start: 20061222
  2. LYRICA [Suspect]
     Indication: NEURALGIA
  3. KLONOPIN [Concomitant]

REACTIONS (2)
  - CONSTIPATION [None]
  - URINARY INCONTINENCE [None]
